FAERS Safety Report 17709746 (Version 3)
Quarter: 2020Q2

REPORT INFORMATION
  Report Type: Report from Study
  Country: GR (occurrence: GR)
  Receive Date: 20200427
  Receipt Date: 20200506
  Transmission Date: 20200714
  Serious: Yes (Hospitalization)
  Sender: FDA-Public Use
  Company Number: GR-AMGEN-GRCCT2020066145

PATIENT
  Age: 10 Year
  Sex: Female
  Weight: 25.7 kg

DRUGS (7)
  1. ETELCALCETIDE [Suspect]
     Active Substance: ETELCALCETIDE
     Indication: HYPERPARATHYROIDISM SECONDARY
     Dosage: 0.17 MILLILITER
     Route: 042
     Dates: start: 20191220
  2. DARBEPOETIN ALFA [Concomitant]
     Active Substance: DARBEPOETIN ALFA
     Dosage: 30 MICROGRAM
     Route: 042
     Dates: start: 20110811
  3. CALCIUM CARBONATE. [Concomitant]
     Active Substance: CALCIUM CARBONATE
     Dosage: 420-1260 MILLIGRAM
     Route: 048
     Dates: start: 20200101
  4. IRON SUCROSE [Concomitant]
     Active Substance: IRON SUCROSE
     Dosage: 50 MILLIGRAM
     Route: 042
     Dates: start: 20191204
  5. PARICALCITOL. [Concomitant]
     Active Substance: PARICALCITOL
     Dosage: 0.5 MICROGRAM
     Route: 042
     Dates: start: 20200113
  6. AMOXICILLIN. [Concomitant]
     Active Substance: AMOXICILLIN
     Dosage: 500 MILLIGRAM
     Route: 048
     Dates: start: 20200125, end: 20200203
  7. CHOLECALCIFEROL [Concomitant]
     Active Substance: CHOLECALCIFEROL
     Dosage: 1400-2000 INTERNATIONAL UNIT
     Route: 048
     Dates: start: 20200122, end: 20200405

REACTIONS (1)
  - Seizure [Recovered/Resolved]

NARRATIVE: CASE EVENT DATE: 20200420
